FAERS Safety Report 15017622 (Version 2)
Quarter: 2019Q2

REPORT INFORMATION
  Report Type: Report from Study
  Country: DE (occurrence: DE)
  Receive Date: 20180615
  Receipt Date: 20190416
  Transmission Date: 20190711
  Serious: Yes (Hospitalization)
  Sender: FDA-Public Use
  Company Number: DE-PFIZER INC-2018238370

PATIENT
  Sex: Male
  Weight: 66 kg

DRUGS (11)
  1. BEVACIZUMAB. [Suspect]
     Active Substance: BEVACIZUMAB
     Indication: COLON CANCER
     Dosage: 330 MG, EVERY 2 WEEKS, DAY 15DATE OF LAST DOSE PRIOR TO MUCOSITIS ORAL: 09/DEC/2013
     Route: 042
     Dates: start: 20130205
  2. FLUOROURACIL. [Suspect]
     Active Substance: FLUOROURACIL
     Indication: COLON CANCER
     Dosage: 1020 MG, CYCLIC DAY 1, DAY 2, DAY 15
     Route: 041
     Dates: start: 20130204
  3. FLUOROURACIL. [Suspect]
     Active Substance: FLUOROURACIL
     Dosage: 1080 MG, CYCLIC DAY 1, DAY 2, DAY 15
     Route: 041
     Dates: start: 20130723
  4. PARACETAMOL [Concomitant]
     Active Substance: ACETAMINOPHEN
     Indication: PAIN
     Dosage: 500 MG, UNK
     Route: 048
     Dates: start: 20130323
  5. DIPYRONE [Concomitant]
     Active Substance: DIPYRONE
     Indication: PAIN
     Dosage: 500MG - 500MG - 500MG -1000 MG
     Route: 048
     Dates: start: 20130323
  6. FLUOROURACIL. [Suspect]
     Active Substance: FLUOROURACIL
     Dosage: 680 MG, CYCLIC DAY 1, DAY 2, DAY 15
     Route: 040
     Dates: start: 20130204
  7. CALCIUM FOLINATE [Suspect]
     Active Substance: LEUCOVORIN CALCIUM
     Indication: COLORECTAL CANCER
     Dosage: 340-360 MG ON DAY 1, DAY 2, DAY 15
     Route: 042
     Dates: start: 20130204, end: 20130806
  8. OXALIPLATIN. [Suspect]
     Active Substance: OXALIPLATIN
     Indication: COLORECTAL CANCER
     Dosage: 144.5 MG, EVERY 2 WEEKS
     Route: 042
     Dates: start: 20130204, end: 20130806
  9. FLUOROURACIL. [Suspect]
     Active Substance: FLUOROURACIL
     Dosage: 720 MG, CYCLIC DAY 1, DAY 2, DAY 15
     Route: 040
     Dates: start: 20130723, end: 20130806
  10. OMEPRAZOL [Concomitant]
     Active Substance: OMEPRAZOLE
     Indication: GASTROOESOPHAGEAL REFLUX DISEASE
     Dosage: 20 MG, 1X/DAY FREQUENCY 0-0-1
     Route: 048
     Dates: start: 20130323
  11. BEVACIZUMAB. [Suspect]
     Active Substance: BEVACIZUMAB
     Dosage: 370 MG, EVERY 2 WEEKS
     Route: 042
     Dates: start: 20130916

REACTIONS (11)
  - Vomiting [Recovered/Resolved]
  - Fatigue [Recovered/Resolved]
  - Abdominal pain [Recovered/Resolved]
  - Constipation [Recovered/Resolved]
  - Fatigue [Recovered/Resolved]
  - Stomatitis [Recovered/Resolved]
  - Abdominal pain lower [Recovered/Resolved]
  - Nausea [Recovered/Resolved]
  - Nausea [Recovered/Resolved]
  - Diarrhoea [Recovered/Resolved]
  - Constipation [Recovered/Resolved]

NARRATIVE: CASE EVENT DATE: 20130204
